FAERS Safety Report 5066411-9 (Version None)
Quarter: 2006Q3

REPORT INFORMATION
  Report Type: 
  Country: None (occurrence: None)
  Receive Date: 20060728
  Receipt Date: 20060728
  Transmission Date: 20061208
  Serious: No
  Sender: FDA-Public Use
  Company Number: None

PATIENT

DRUGS (3)
  1. CIPROFLOXACIN [Suspect]
  2. ETHINYL/ESTRADIOL/NORGESTIMATE [Concomitant]
  3. ACETAMINOPHEN [Concomitant]

REACTIONS (8)
  - COUGH [None]
  - EPISTAXIS [None]
  - HEADACHE [None]
  - MALAISE [None]
  - METRORRHAGIA [None]
  - PETECHIAE [None]
  - PLATELET COUNT DECREASED [None]
  - TACHYCARDIA [None]
